FAERS Safety Report 11143743 (Version 1)
Quarter: 2015Q2

REPORT INFORMATION
  Report Type: Spontaneous
  Country: JP (occurrence: JP)
  Receive Date: 20150528
  Receipt Date: 20150528
  Transmission Date: 20150821
  Serious: Yes (Other)
  Sender: FDA-Public Use
  Company Number: JP-ACCORD-031061

PATIENT
  Age: 65 Year
  Sex: Female

DRUGS (5)
  1. SIMEPREVIR [Suspect]
     Active Substance: SIMEPREVIR
     Indication: HEPATITIS C
  2. PEGINTERFERON ALFA-2A [Suspect]
     Active Substance: PEGINTERFERON ALFA-2A
     Indication: HEPATITIS C
  3. MYCOPHENOLIC ACID. [Interacting]
     Active Substance: MYCOPHENOLIC ACID
     Indication: LIVER TRANSPLANT
  4. TACROLIMUS. [Suspect]
     Active Substance: TACROLIMUS
     Indication: LIVER TRANSPLANT
     Dosage: RECEIVED AFTER AT DIFFERENT DOSES: AT 1.8, 1.4, 2.0, 2.2 AND 2.0 MG/DAY
  5. RIBAVIRIN. [Interacting]
     Active Substance: RIBAVIRIN
     Indication: HEPATITIS C

REACTIONS (2)
  - Drug interaction [Unknown]
  - Haemolytic anaemia [Recovering/Resolving]
